FAERS Safety Report 11237718 (Version 3)
Quarter: 2015Q3

REPORT INFORMATION
  Report Type: Spontaneous
  Country: JP (occurrence: JP)
  Receive Date: 20150703
  Receipt Date: 20150729
  Transmission Date: 20151125
  Serious: Yes (Hospitalization)
  Sender: FDA-Public Use
  Company Number: JP-NOVOPROD-454275

PATIENT
  Age: 27 Year
  Sex: Female
  Weight: 48.5 kg

DRUGS (8)
  1. SOPHIA A [Concomitant]
     Indication: HYPOPITUITARISM
     Dosage: NORETHISTERONE 1G/  MESTRANOL0.05MG
     Route: 048
     Dates: start: 200208
  2. NORDITROPIN [Suspect]
     Active Substance: SOMATROPIN
     Indication: GROWTH HORMONE DEFICIENCY
     Dosage: 0.021MG/KG/WEEK
     Route: 058
     Dates: start: 201002
  3. DESMOPRESSIN [Concomitant]
     Active Substance: DESMOPRESSIN
     Indication: DIABETES INSIPIDUS
     Dosage: 25 ?G, QD
     Route: 045
     Dates: start: 200208
  4. PREMARIN [Concomitant]
     Active Substance: ESTROGENS, CONJUGATED
     Indication: HYPOPITUITARISM
     Dosage: 0.63 MG, QD
     Route: 048
     Dates: start: 200208
  5. CORTRIL [Concomitant]
     Active Substance: HYDROCORTISONE
     Indication: HYPOPITUITARISM
     Dosage: 10 MG, QD
     Route: 048
     Dates: start: 200208
  6. MINIRIN [Concomitant]
     Active Substance: DESMOPRESSIN ACETATE
     Indication: DIABETES INSIPIDUS
     Dosage: 60 ?G, QD
     Route: 048
  7. NORDITROPIN [Suspect]
     Active Substance: SOMATROPIN
     Dosage: 0.042MG/KG/WEEK
     Route: 058
     Dates: end: 20150421
  8. THYRADIN S [Concomitant]
     Active Substance: LEVOTHYROXINE SODIUM
     Indication: HYPOPITUITARISM
     Dosage: 100 ?G, QD
     Route: 048
     Dates: start: 200208

REACTIONS (1)
  - Pituitary tumour [Not Recovered/Not Resolved]

NARRATIVE: CASE EVENT DATE: 201411
